FAERS Safety Report 8335211-6 (Version None)
Quarter: 2012Q2

REPORT INFORMATION
  Report Type: 
  Country: None (occurrence: None)
  Receive Date: 20120503
  Receipt Date: 20120424
  Transmission Date: 20120825
  Serious: No
  Sender: FDA-Public Use
  Company Number: US-FRI-1000024175

PATIENT
  Sex: Male
  Weight: 145.1 kg

DRUGS (24)
  1. VIIBRYD [Suspect]
     Dosage: 20 MG
     Route: 048
     Dates: start: 20110907, end: 20110913
  2. JANUVIA [Concomitant]
  3. MELATONIN [Concomitant]
  4. XYZAL [Concomitant]
  5. ATIVAN [Concomitant]
  6. LASIX [Concomitant]
  7. ZYLOPRIM [Concomitant]
  8. SYNTHROID [Concomitant]
  9. NAPROXEN [Concomitant]
  10. HYTRIN [Concomitant]
  11. RISPERDAL [Concomitant]
  12. EFFEXOR [Concomitant]
  13. LOVAZA [Concomitant]
  14. FIORICET [Concomitant]
  15. PERCOCET [Concomitant]
  16. VIIBRYD [Suspect]
     Indication: DEPRESSION
     Dosage: 10 MG
     Route: 048
     Dates: start: 20110831, end: 20110906
  17. NITROGLYCERIN [Concomitant]
  18. NEXIUM [Concomitant]
  19. VIIBRYD [Suspect]
     Dosage: 40 MG
     Route: 048
     Dates: start: 20110914, end: 20110924
  20. SPIRIVA [Concomitant]
  21. SINGULAIR [Concomitant]
  22. ZOMETA [Concomitant]
  23. DEPLIN [Concomitant]
  24. SERRAPEPTASE [Concomitant]

REACTIONS (1)
  - SUICIDAL IDEATION [None]
